APPROVED DRUG PRODUCT: DICYCLOMINE HYDROCHLORIDE
Active Ingredient: DICYCLOMINE HYDROCHLORIDE
Strength: 20MG
Dosage Form/Route: TABLET;ORAL
Application: A088585 | Product #001
Applicant: PIONEER PHARMACEUTICALS INC
Approved: Aug 20, 1986 | RLD: No | RS: No | Type: DISCN